FAERS Safety Report 6706775-0 (Version None)
Quarter: 2010Q2

REPORT INFORMATION
  Report Type: 
  Country: None (occurrence: None)
  Receive Date: 20100503
  Receipt Date: 20100419
  Transmission Date: 20101027
  Serious: Yes (Other)
  Sender: FDA-Public Use
  Company Number: PHEH2006US01253

PATIENT
  Sex: Female
  Weight: 86.167 kg

DRUGS (6)
  1. ZOMETA [Suspect]
     Indication: BREAST CANCER METASTATIC
     Dosage: 4 MG, QMO
     Dates: start: 20040301, end: 20050601
  2. ZOMETA [Suspect]
     Dosage: 4 MG, QMO
     Dates: start: 20061116
  3. ARIMIDEX [Concomitant]
     Indication: BREAST CANCER
  4. FEMARA [Concomitant]
     Indication: BREAST CANCER
     Dosage: UNK
     Dates: start: 20040201
  5. FEMARA [Concomitant]
     Dosage: UNK
     Dates: start: 20061113
  6. VITAMINS [Concomitant]

REACTIONS (33)
  - ALANINE AMINOTRANSFERASE INCREASED [None]
  - ANXIETY [None]
  - ASPARTATE AMINOTRANSFERASE INCREASED [None]
  - BILIRUBIN CONJUGATED INCREASED [None]
  - BLOOD ALKALINE PHOSPHATASE INCREASED [None]
  - BLOOD BILIRUBIN INCREASED [None]
  - BLOOD LACTATE DEHYDROGENASE INCREASED [None]
  - BONE DENSITY DECREASED [None]
  - BONE DISORDER [None]
  - BONE LESION [None]
  - COMPUTERISED TOMOGRAM ABNORMAL [None]
  - DENTURE WEARER [None]
  - DYSGEUSIA [None]
  - FACET JOINT SYNDROME [None]
  - HEADACHE [None]
  - IMPAIRED HEALING [None]
  - LOOSE TOOTH [None]
  - MALIGNANT NEOPLASM PROGRESSION [None]
  - METASTASES TO BONE [None]
  - NASAL SINUS CANCER [None]
  - OSTEONECROSIS [None]
  - PAIN IN JAW [None]
  - PLATELET COUNT DECREASED [None]
  - PRIMARY SEQUESTRUM [None]
  - SCOLIOSIS [None]
  - SINUS DISORDER [None]
  - SINUSITIS [None]
  - SPINAL OSTEOARTHRITIS [None]
  - SPONDYLOLISTHESIS [None]
  - TOOTH DISORDER [None]
  - TOOTH EXTRACTION [None]
  - TOOTH LOSS [None]
  - WOUND DRAINAGE [None]
